FAERS Safety Report 9619495 (Version 3)
Quarter: 2013Q4

REPORT INFORMATION
  Report Type: Report from Study
  Country: FR (occurrence: FR)
  Receive Date: 20131014
  Receipt Date: 20131127
  Transmission Date: 20140711
  Serious: Yes (Hospitalization, Other)
  Sender: FDA-Public Use
  Company Number: FR-PFIZER INC-2013290558

PATIENT
  Age: 18 Year
  Sex: Female
  Weight: 51 kg

DRUGS (10)
  1. ATGAM [Suspect]
     Indication: BONE MARROW FAILURE
     Dosage: 40 MG/KG, 1X/DAY
     Route: 042
     Dates: start: 20131008, end: 20131009
  2. METHYLPREDNISOLONE [Concomitant]
     Indication: PREMEDICATION
     Dosage: 30 MG, UNK
     Route: 042
     Dates: start: 20131007
  3. POLARAMINE [Concomitant]
     Indication: PREMEDICATION
     Dosage: 5 MG, UNK
  4. PIPERACILLIN/TAZOBACTAM [Concomitant]
     Indication: FEBRILE NEUTROPENIA
     Dosage: 4 G, 3X/DAY
     Route: 042
     Dates: start: 20131003
  5. FLAGYL [Concomitant]
     Dosage: 500 MG, 3X/DAY
     Route: 048
     Dates: start: 20131003
  6. HEPARIN SODIUM [Concomitant]
     Indication: THROMBOSIS PROPHYLAXIS
     Dosage: 5410 IU, DAILY
     Route: 042
     Dates: start: 20131003
  7. FENTANYL [Concomitant]
     Indication: PAIN
     Dosage: 10 UG, DAILY
     Route: 042
     Dates: start: 20131004
  8. SPECIAFOLDINE [Concomitant]
     Dosage: 5 MG, DAILY
  9. CICLOSPORIN [Concomitant]
     Indication: BONE MARROW FAILURE
     Dosage: 150 MG, 2X/DAY
     Dates: start: 20131007
  10. DOLIPRANE [Concomitant]
     Dosage: UNK

REACTIONS (3)
  - Urticaria [Recovered/Resolved]
  - Anaphylactic shock [Recovered/Resolved]
  - Hypotension [Recovered/Resolved]
